FAERS Safety Report 5985936-2 (Version None)
Quarter: 2008Q4

REPORT INFORMATION
  Report Type: 
  Country: None (occurrence: None)
  Receive Date: 20081209
  Receipt Date: 20081205
  Transmission Date: 20090506
  Serious: Yes (Hospitalization)
  Sender: FDA-Public Use
  Company Number: US-SP-2008-02886

PATIENT
  Age: 68 Year
  Sex: Male

DRUGS (1)
  1. BCG  THERAPEUTICS [Suspect]
     Indication: BLADDER CANCER
     Route: 043

REACTIONS (14)
  - DYSURIA [None]
  - EPIDIDYMAL TENDERNESS [None]
  - EPIDIDYMITIS [None]
  - ESCHERICHIA INFECTION [None]
  - LEUKOCYTOSIS [None]
  - MICTURITION URGENCY [None]
  - ORCHITIS [None]
  - PYREXIA [None]
  - SCROTAL DISORDER [None]
  - SCROTAL PAIN [None]
  - SCROTAL SWELLING [None]
  - TESTICULAR ABSCESS [None]
  - TESTICULAR DISORDER [None]
  - TESTICULAR PAIN [None]
